FAERS Safety Report 7471730-2 (Version None)
Quarter: 2011Q2

REPORT INFORMATION
  Report Type: 
  Country: None (occurrence: None)
  Receive Date: 20110511
  Receipt Date: 20100712
  Transmission Date: 20111010
  Serious: No
  Sender: FDA-Public Use
  Company Number: A0810601A

PATIENT
  Sex: Female

DRUGS (2)
  1. TYKERB [Suspect]
     Dosage: 1250MGD PER DAY
     Route: 048
     Dates: start: 20090901, end: 20091201
  2. XELODA [Suspect]
     Dosage: 2000MG TWICE PER DAY
     Dates: start: 20090901, end: 20091201

REACTIONS (2)
  - HYPOAESTHESIA [None]
  - FATIGUE [None]
